FAERS Safety Report 12173001 (Version 2)
Quarter: 2017Q2

REPORT INFORMATION
  Report Type: Report from Study
  Country: US (occurrence: US)
  Receive Date: 20160311
  Receipt Date: 20170620
  Transmission Date: 20170830
  Serious: Yes (Hospitalization)
  Sender: FDA-Public Use
  Company Number: US-PFIZER INC-2016136602

PATIENT
  Age: 59 Year
  Sex: Female
  Weight: 51 kg

DRUGS (11)
  1. AXITINIB [Suspect]
     Active Substance: AXITINIB
     Dosage: 5 MG, 2X/DAY
     Route: 048
     Dates: start: 20151215, end: 20160228
  2. TRC105 [Suspect]
     Active Substance: INVESTIGATIONAL PRODUCT
     Dosage: 7 MG/KG, WEEKLY, ON C1D4, 28 DAY CYCLES
     Route: 042
     Dates: start: 20151119
  3. METOPROLOL SUCCINATE. [Concomitant]
     Active Substance: METOPROLOL SUCCINATE
     Dosage: UNK
     Dates: start: 20140701, end: 20160229
  4. OMEPRAZOLE. [Concomitant]
     Active Substance: OMEPRAZOLE
     Dosage: UNK
     Dates: end: 20160328
  5. TRC105 [Suspect]
     Active Substance: INVESTIGATIONAL PRODUCT
     Dosage: 10 MG/KG, WEEKLY, FROM C1D8, 28 DAY CYCLES
     Route: 042
     Dates: start: 20151123, end: 20160222
  6. LISINOPRIL. [Concomitant]
     Active Substance: LISINOPRIL
     Dosage: UNK
     Dates: start: 20150317
  7. AXITINIB [Suspect]
     Active Substance: AXITINIB
     Indication: CLEAR CELL RENAL CELL CARCINOMA
     Dosage: 5 MG, 2X/DAY
     Route: 048
     Dates: start: 20151116, end: 20151214
  8. TRC105 [Suspect]
     Active Substance: INVESTIGATIONAL PRODUCT
     Indication: CLEAR CELL RENAL CELL CARCINOMA
     Dosage: 3 MG/KG, WEEKLY, ON C1D1, 28 DAY CYCLES
     Route: 042
     Dates: start: 20151116, end: 20151116
  9. AMLODIPINE [Concomitant]
     Active Substance: AMLODIPINE BESYLATE
     Dosage: UNK
     Dates: start: 20150819
  10. PROCHLORPERAZINE. [Concomitant]
     Active Substance: PROCHLORPERAZINE
     Dosage: UNK
     Dates: start: 20160104, end: 20160229
  11. LORAZEPAM. [Concomitant]
     Active Substance: LORAZEPAM
     Dosage: UNK
     Dates: start: 20151116

REACTIONS (1)
  - Pancreatitis [Recovered/Resolved]

NARRATIVE: CASE EVENT DATE: 20160229
